FAERS Safety Report 5470163-8 (Version None)
Quarter: 2007Q3

REPORT INFORMATION
  Report Type: 
  Country: None (occurrence: None)
  Receive Date: 20070927
  Receipt Date: 20070919
  Transmission Date: 20080115
  Serious: Yes (Other)
  Sender: FDA-Public Use
  Company Number: AU-PFIZER INC-2007078755

PATIENT
  Age: 63 Year
  Sex: Male

DRUGS (5)
  1. CADUET [Suspect]
     Dosage: TEXT:10/40MG
  2. MINIPRESS [Suspect]
     Indication: PROSTATIC DISORDER
  3. LIPITOR [Suspect]
  4. NORVASC [Suspect]
  5. ZESTRIL [Suspect]

REACTIONS (4)
  - CARDIOVASCULAR DISORDER [None]
  - JOINT SWELLING [None]
  - NAIL INFECTION [None]
  - OEDEMA PERIPHERAL [None]
